FAERS Safety Report 9692894 (Version 1)
Quarter: 2013Q4

REPORT INFORMATION
  Report Type: Spontaneous
  Country: US (occurrence: US)
  Receive Date: 20131118
  Receipt Date: 20131118
  Transmission Date: 20140711
  Serious: Yes (Hospitalization)
  Sender: FDA-Public Use
  Company Number: US-BAYER-2013-139462

PATIENT
  Age: 23 Year
  Sex: Female

DRUGS (14)
  1. YAZ [Suspect]
     Route: 048
  2. BEYAZ [Suspect]
     Route: 048
  3. REMICADE [Concomitant]
  4. ACYCLOVIR [ACICLOVIR] [Concomitant]
  5. IRON [Concomitant]
  6. TYLENOL ES [Concomitant]
  7. LORTAB [Concomitant]
  8. CIPRO [Concomitant]
  9. FLAGYL [Concomitant]
  10. LEVSIN [Concomitant]
  11. MERCAPTOPURINE [Concomitant]
  12. ZOFRAN [Concomitant]
  13. OMEPRAZOLE [Concomitant]
  14. PREDNISONE [Concomitant]

REACTIONS (1)
  - Pulmonary embolism [None]
